FAERS Safety Report 18978631 (Version 3)
Quarter: 2021Q2

REPORT INFORMATION
  Report Type: Report from Study
  Country: None (occurrence: CA)
  Receive Date: 20210308
  Receipt Date: 20210417
  Transmission Date: 20210717
  Serious: Yes (Death, Other)
  Sender: FDA-Public Use
  Company Number: CA-ABBVIE-21K-028-3804085-00

PATIENT
  Age: 79 Year
  Sex: Female
  Weight: 56.75 kg

DRUGS (12)
  1. ROSUVASTATIN CALCIUM GENERIC [Concomitant]
     Active Substance: ROSUVASTATIN CALCIUM
     Indication: PRODUCT USED FOR UNKNOWN INDICATION
     Dosage: ROSUVASTATIN CALCIUM (APO?ROSUVASTATIN)
     Dates: start: 20210212
  2. SERTRALINE [Concomitant]
     Active Substance: SERTRALINE HYDROCHLORIDE
     Indication: PRODUCT USED FOR UNKNOWN INDICATION
     Dates: start: 20210212
  3. BISOPROLOL TEVA [Concomitant]
     Active Substance: BISOPROLOL
     Indication: PRODUCT USED FOR UNKNOWN INDICATION
     Dosage: 0.5, 1 DAYS
     Dates: start: 20210212
  4. DUODOPA [Suspect]
     Active Substance: CARBIDOPA\LEVODOPA
  5. SERTRALINE [Concomitant]
     Active Substance: SERTRALINE HYDROCHLORIDE
     Indication: PRODUCT USED FOR UNKNOWN INDICATION
     Dates: start: 20210212
  6. PERINDOPRIL [Concomitant]
     Active Substance: PERINDOPRIL
     Indication: PRODUCT USED FOR UNKNOWN INDICATION
  7. RISEDRONATE TEVA [Concomitant]
     Active Substance: RISEDRONATE SODIUM
     Indication: PRODUCT USED FOR UNKNOWN INDICATION
     Dates: start: 20210212
  8. CLOPIDOGREL [Concomitant]
     Active Substance: CLOPIDOGREL BISULFATE
     Indication: PRODUCT USED FOR UNKNOWN INDICATION
     Dosage: CLOPIDOGREL BISULFATE (PMS?CLOPIDOGREL)
     Dates: start: 20210212
  9. DUODOPA [Suspect]
     Active Substance: CARBIDOPA\LEVODOPA
     Indication: PARKINSON^S DISEASE
     Dosage: LEVODOPA 20MG/ML, CARBIDOPAMONOHYDRATE 5MG/ML 20 MG/ML 5 MG/ML
     Route: 050
     Dates: start: 20181204
  10. PRAMIPEXOLE. [Concomitant]
     Active Substance: PRAMIPEXOLE
     Indication: PRODUCT USED FOR UNKNOWN INDICATION
     Dosage: PRAMIPEXOLE DIHYDROCHLORIDE MONOHYDRATE (APO?PRAMIPEXOLE)?0.5, 1 DAYS
     Dates: start: 20210212
  11. FUROSEMIDE. [Concomitant]
     Active Substance: FUROSEMIDE
     Indication: PRODUCT USED FOR UNKNOWN INDICATION
     Dates: start: 20210212
  12. SENOKOT [Concomitant]
     Active Substance: SENNOSIDES
     Indication: PRODUCT USED FOR UNKNOWN INDICATION
     Dates: start: 20210212

REACTIONS (27)
  - Drug hypersensitivity [Unknown]
  - White blood cell count increased [Unknown]
  - Cardiac arrest [Fatal]
  - International normalised ratio increased [Unknown]
  - Platelet count increased [Unknown]
  - Red cell distribution width increased [Unknown]
  - Pyrexia [Unknown]
  - Lipase increased [Unknown]
  - Blood alkaline phosphatase increased [Unknown]
  - Blood phosphorus decreased [Unknown]
  - General symptom [Unknown]
  - Haemoglobin decreased [Unknown]
  - Depressed level of consciousness [Unknown]
  - Prothrombin level increased [Unknown]
  - Meningitis [Unknown]
  - Lymphocyte count decreased [Unknown]
  - Heart rate increased [Unknown]
  - Monocyte count increased [Unknown]
  - Troponin I increased [Unknown]
  - Aspartate aminotransferase increased [Unknown]
  - Blood sodium increased [Unknown]
  - Blood chloride increased [Unknown]
  - Red blood cell count decreased [Unknown]
  - Neutrophil count increased [Unknown]
  - Eosinophil count decreased [Unknown]
  - Blood magnesium decreased [Unknown]
  - Mean cell haemoglobin concentration decreased [Unknown]

NARRATIVE: CASE EVENT DATE: 20210227
